FAERS Safety Report 11062522 (Version 3)
Quarter: 2015Q2

REPORT INFORMATION
  Report Type: Spontaneous
  Country: FR (occurrence: FR)
  Receive Date: 20150424
  Receipt Date: 20150612
  Transmission Date: 20150821
  Serious: Yes (Hospitalization, Other)
  Sender: FDA-Public Use
  Company Number: FR-PFIZER INC-2015137861

PATIENT
  Age: 72 Year
  Sex: Female

DRUGS (19)
  1. LEVOTHYROX [Concomitant]
     Active Substance: LEVOTHYROXINE
     Dosage: 75 ?G, DAILY
  2. CONTRAMAL [Suspect]
     Active Substance: TRAMADOL HYDROCHLORIDE
     Dosage: UNK
     Route: 042
     Dates: start: 20150117, end: 20150120
  3. LEXOMIL [Suspect]
     Active Substance: BROMAZEPAM
     Dosage: 0.25 DF MORNING AND 0.5 DF EVENING
     Dates: end: 20150111
  4. LEXOMIL [Suspect]
     Active Substance: BROMAZEPAM
     Dosage: UNK
     Dates: start: 20150112, end: 20150112
  5. LASILIX FAIBLE [Concomitant]
     Active Substance: FUROSEMIDE
     Dosage: 20 MG, DAILY
     Route: 048
     Dates: end: 20150127
  6. METRONIDAZOLE. [Suspect]
     Active Substance: METRONIDAZOLE
     Indication: PNEUMONIA ASPIRATION
     Dosage: 500 MG, 3X/DAY
     Route: 042
     Dates: start: 20150117, end: 20150131
  7. INEXIUM [Concomitant]
     Active Substance: ESOMEPRAZOLE
     Dosage: 20 MG, DAILY
     Route: 048
  8. SERETIDE [Concomitant]
     Active Substance: FLUTICASONE FUROATE\SALMETEROL XINAFOATE
     Dosage: 1 PUFF, 3X/DAY
  9. EFFEXOR [Suspect]
     Active Substance: VENLAFAXINE HYDROCHLORIDE
     Dosage: 75 MG, 1X/DAY
     Route: 048
     Dates: start: 201501, end: 20150128
  10. LEVOFLOXACIN. [Suspect]
     Active Substance: LEVOFLOXACIN
     Indication: PNEUMONIA ASPIRATION
     Dosage: 500 MG, 1X/DAY
     Route: 042
     Dates: start: 20150117, end: 20150120
  11. CEFOTAXIME [Suspect]
     Active Substance: CEFOTAXIME\CEFOTAXIME SODIUM
     Indication: PNEUMONIA ASPIRATION
     Dosage: 2 G, 3X/DAY
     Route: 042
     Dates: start: 20150117, end: 20150131
  12. EFFEXOR [Suspect]
     Active Substance: VENLAFAXINE HYDROCHLORIDE
     Dosage: 37.5 MG, 1X/DAY
     Route: 048
     Dates: end: 201501
  13. HYDROCORTISONE. [Concomitant]
     Active Substance: HYDROCORTISONE
     Dosage: 10 MG, 2X/DAY
  14. DIFFU K [Concomitant]
     Active Substance: POTASSIUM CHLORIDE
     Dosage: 1 DF, DAILY
  15. AUGMENTIN [Concomitant]
     Active Substance: AMOXICILLIN\CLAVULANATE POTASSIUM
     Indication: PNEUMONIA ASPIRATION
     Dosage: UNK
     Dates: start: 20150117, end: 20150117
  16. LOXEN LP [Suspect]
     Active Substance: NICARDIPINE
     Dosage: 50 MG, 1X/DAY
     Route: 048
     Dates: start: 20150117, end: 20150130
  17. LYRICA [Concomitant]
     Active Substance: PREGABALIN
     Dosage: 100 MG, 3X/DAY
     Route: 048
     Dates: end: 20150120
  18. RHINOCORT [Concomitant]
     Active Substance: BUDESONIDE
     Dosage: UNK
  19. EUPANTOL [Concomitant]
     Active Substance: PANTOPRAZOLE SODIUM
     Dosage: UNK
     Route: 042
     Dates: start: 20150121

REACTIONS (24)
  - Enteritis [Unknown]
  - Acute kidney injury [Not Recovered/Not Resolved]
  - Persecutory delusion [Recovered/Resolved]
  - Hypotension [Unknown]
  - Inflammation [Unknown]
  - Vomiting [Unknown]
  - Blood thyroid stimulating hormone increased [Unknown]
  - Gastritis [Unknown]
  - Poisoning deliberate [Unknown]
  - Hypothyroidism [Unknown]
  - Disease progression [Unknown]
  - Head injury [Unknown]
  - Pneumonia aspiration [Unknown]
  - Haematemesis [Unknown]
  - VIIth nerve paralysis [Unknown]
  - Fall [Unknown]
  - Dehydration [Unknown]
  - General physical health deterioration [Unknown]
  - Shock [Unknown]
  - Nervous system disorder [Unknown]
  - Metabolic acidosis [Unknown]
  - Delirium [Recovered/Resolved]
  - Pyrexia [Unknown]
  - Monoplegia [Unknown]

NARRATIVE: CASE EVENT DATE: 2015
